FAERS Safety Report 25289643 (Version 2)
Quarter: 2025Q3

REPORT INFORMATION
  Report Type: Spontaneous
  Country: BR (occurrence: BR)
  Receive Date: 20250509
  Receipt Date: 20250702
  Transmission Date: 20251021
  Serious: Yes (Hospitalization, Other)
  Sender: BAYER HEALTHCARE PHARMACEUTICALS INC.
  Company Number: BR-BAYER-2025A059576

PATIENT
  Age: 57 Year
  Sex: Female

DRUGS (3)
  1. CIPRO [Suspect]
     Active Substance: CIPROFLOXACIN HYDROCHLORIDE
     Indication: Diverticulitis
     Dosage: 500 MG, BID
     Route: 048
     Dates: start: 20250425
  2. FLAGYL [Concomitant]
     Active Substance: METRONIDAZOLE\METRONIDAZOLE HYDROCHLORIDE
     Indication: Diverticulitis
     Dosage: UNK UNK, Q8HR
  3. AMOXICILLIN\CLAVULANATE POTASSIUM [Concomitant]
     Active Substance: AMOXICILLIN\CLAVULANATE POTASSIUM

REACTIONS (4)
  - Pain in extremity [Recovered/Resolved]
  - Diverticulitis [Recovered/Resolved]
  - Product use in unapproved indication [None]
  - Diverticulitis [Recovered/Resolved]

NARRATIVE: CASE EVENT DATE: 20250425
